FAERS Safety Report 16475968 (Version 1)
Quarter: 2019Q2

REPORT INFORMATION
  Report Type: Spontaneous
  Country: BR (occurrence: BR)
  Receive Date: 20190625
  Receipt Date: 20190625
  Transmission Date: 20190711
  Serious: Yes (Hospitalization)
  Sender: FDA-Public Use
  Company Number: BR-BIOMARINAP-BR-2019-124375

PATIENT
  Sex: Female
  Weight: 18 kg

DRUGS (2)
  1. NAGLAZYME [Suspect]
     Active Substance: GALSULFASE
     Indication: MUCOPOLYSACCHARIDOSIS VI
     Dosage: UNK, QW
     Route: 042
     Dates: start: 2011
  2. ENALAPRIL [Concomitant]
     Active Substance: ENALAPRIL
     Indication: CARDIAC MURMUR
     Dosage: UNK, QD

REACTIONS (4)
  - Influenza like illness [Recovering/Resolving]
  - Viral infection [Recovering/Resolving]
  - Pyrexia [Recovering/Resolving]
  - Cough [Recovering/Resolving]
